FAERS Safety Report 7929532-6 (Version None)
Quarter: 2011Q4

REPORT INFORMATION
  Report Type: 
  Country: None (occurrence: None)
  Receive Date: 20111121
  Receipt Date: 20111118
  Transmission Date: 20120403
  Serious: Yes (Death)
  Sender: FDA-Public Use
  Company Number: IN-B.I. PHARMACEUTICALS,INC./RIDGEFIELD-2011-CS-01096IG

PATIENT
  Age: 59 Year
  Sex: Male
  Weight: 75 kg

DRUGS (3)
  1. ACETYLSALICYLIC ACID SRT [Concomitant]
  2. GLEVIX [Concomitant]
  3. AGGRENOX [Suspect]
     Indication: CEREBROVASCULAR ACCIDENT
     Dosage: 25/200 MG, TWICE DAILY
     Route: 048
     Dates: start: 20110801, end: 20111028

REACTIONS (1)
  - CEREBRAL HAEMORRHAGE [None]
